FAERS Safety Report 17480848 (Version 1)
Quarter: 2020Q1

REPORT INFORMATION
  Report Type: Spontaneous
  Country: IT (occurrence: IT)
  Receive Date: 20200301
  Receipt Date: 20200301
  Transmission Date: 20200409
  Serious: Yes (Other)
  Sender: FDA-Public Use
  Company Number: ALC2018IT000462

PATIENT

DRUGS (1)
  1. FLUORESCEIN SODIUM. [Suspect]
     Active Substance: FLUORESCEIN SODIUM
     Indication: ANGIOGRAM NORMAL
     Dosage: 1 DF
     Route: 065
     Dates: start: 20180627, end: 20180627

REACTIONS (3)
  - Swelling face [Recovered/Resolved]
  - Larynx irritation [Recovered/Resolved]
  - Urticaria [Recovered/Resolved]

NARRATIVE: CASE EVENT DATE: 20180627
